FAERS Safety Report 16473363 (Version 1)
Quarter: 2019Q2

REPORT INFORMATION
  Report Type: Report from Study
  Country: US (occurrence: US)
  Receive Date: 20190625
  Receipt Date: 20190625
  Transmission Date: 20190711
  Serious: Yes (Other)
  Sender: FDA-Public Use
  Company Number: US-MYLANLABS-2018M1090986

PATIENT
  Age: 55 Year
  Sex: Female
  Weight: 68.93 kg

DRUGS (1)
  1. GLATIRAMER ACETATE INJECTION [Suspect]
     Active Substance: GLATIRAMER ACETATE
     Indication: RELAPSING-REMITTING MULTIPLE SCLEROSIS
     Dosage: 40 MILLIGRAM, 3XW
     Route: 058

REACTIONS (9)
  - Eye swelling [Unknown]
  - Injection site pruritus [Unknown]
  - Pain in extremity [Unknown]
  - Pyrexia [Unknown]
  - Pain [Unknown]
  - Injection site pain [Recovered/Resolved]
  - Multiple sclerosis relapse [Unknown]
  - Facial paralysis [Unknown]
  - Injection site mass [Unknown]

NARRATIVE: CASE EVENT DATE: 20180312
